FAERS Safety Report 5282912-2 (Version None)
Quarter: 2007Q2

REPORT INFORMATION
  Report Type: 
  Country: None (occurrence: None)
  Receive Date: 20070402
  Receipt Date: 20070320
  Transmission Date: 20071010
  Serious: Yes (Hospitalization, Other)
  Sender: FDA-Public Use
  Company Number: JP-PFIZER INC-2007018488

PATIENT
  Sex: Female

DRUGS (5)
  1. NEURONTIN [Suspect]
     Indication: PARTIAL SEIZURES
     Route: 048
     Dates: start: 20061122, end: 20070202
  2. VALPROATE SODIUM [Concomitant]
     Route: 048
     Dates: start: 20020705
  3. CARBAMAZEPINE [Concomitant]
     Route: 048
     Dates: start: 20020705
  4. RIVOTRIL [Concomitant]
     Route: 048
     Dates: start: 20020705
  5. DIAZEPAM [Concomitant]
     Route: 048

REACTIONS (3)
  - CONVULSION [None]
  - MICTURITION FREQUENCY DECREASED [None]
  - NASOPHARYNGITIS [None]
